FAERS Safety Report 9330170 (Version 7)
Quarter: 2014Q2

REPORT INFORMATION
  Report Type: Spontaneous
  Country: ES (occurrence: ES)
  Receive Date: 20130604
  Receipt Date: 20140521
  Transmission Date: 20141212
  Serious: Yes (Death, Hospitalization)
  Sender: FDA-Public Use
  Company Number: ES-CELGENEUS-144-21880-13040599

PATIENT
  Age: 78 Year
  Sex: Male
  Weight: 82.7 kg

DRUGS (50)
  1. REVLIMID [Suspect]
     Indication: PLASMA CELL MYELOMA
     Dosage: 10 MILLIGRAM
     Route: 048
     Dates: start: 20120813
  2. REVLIMID [Suspect]
     Dosage: 5 MILLIGRAM
     Route: 048
     Dates: start: 20120813, end: 20130421
  3. REVLIMID [Suspect]
     Dosage: 5 MILLIGRAM
     Route: 048
     Dates: start: 20120813, end: 20130527
  4. DEXAMETHASONE [Suspect]
     Indication: PLASMA CELL MYELOMA
     Dosage: 40 MILLIGRAM
     Route: 048
     Dates: start: 20120813, end: 20130527
  5. DEXAMETHASONE [Suspect]
     Dosage: 12 MILLIGRAM
     Route: 048
     Dates: start: 20120813, end: 20130422
  6. ZOLEDRONIC ACID [Concomitant]
     Indication: PRODUCT USED FOR UNKNOWN INDICATION
     Route: 065
     Dates: start: 20120813, end: 20120813
  7. ZOLEDRONIC ACID [Concomitant]
     Route: 065
     Dates: start: 20130304, end: 20130304
  8. ZOLEDRONIC ACID [Concomitant]
     Route: 065
     Dates: start: 20130408, end: 20130408
  9. OMEPRAZOLE [Concomitant]
     Indication: PRODUCT USED FOR UNKNOWN INDICATION
     Route: 065
     Dates: start: 20130219, end: 20130429
  10. OMEPRAZOLE [Concomitant]
     Route: 065
     Dates: start: 20130123, end: 20130429
  11. OMEPRAZOLE [Concomitant]
     Route: 065
     Dates: start: 20130219
  12. OMEPRAZOLE [Concomitant]
     Route: 065
     Dates: start: 200202, end: 20130429
  13. OMEPRAZOLE [Concomitant]
     Route: 065
     Dates: start: 20130509
  14. AMLODIPINE [Concomitant]
     Indication: PRODUCT USED FOR UNKNOWN INDICATION
     Route: 065
     Dates: start: 200908
  15. CRESTOR [Concomitant]
     Indication: PRODUCT USED FOR UNKNOWN INDICATION
     Route: 065
     Dates: start: 20120514, end: 20130408
  16. FUROSEMIDE [Concomitant]
     Indication: PRODUCT USED FOR UNKNOWN INDICATION
     Route: 065
     Dates: start: 200606, end: 20130415
  17. FUROSEMIDE [Concomitant]
     Route: 065
     Dates: start: 20121023
  18. FUROSEMIDE [Concomitant]
     Route: 065
     Dates: start: 20130219, end: 20130222
  19. FUROSEMIDE [Concomitant]
     Route: 065
     Dates: start: 20130318, end: 20130318
  20. FUROSEMIDE [Concomitant]
     Route: 065
     Dates: start: 20130323, end: 20130324
  21. BOI K [Concomitant]
     Indication: PRODUCT USED FOR UNKNOWN INDICATION
     Route: 065
     Dates: start: 20120904
  22. BOI K [Concomitant]
     Route: 065
     Dates: start: 20130218, end: 20130219
  23. BOI K [Concomitant]
     Route: 065
     Dates: start: 20130327, end: 20130327
  24. BOI K [Concomitant]
     Route: 065
     Dates: start: 20130123
  25. PARACETAMOL [Concomitant]
     Indication: PRODUCT USED FOR UNKNOWN INDICATION
     Route: 065
     Dates: start: 20120820
  26. PARACETAMOL [Concomitant]
     Route: 065
     Dates: start: 20130607, end: 20130607
  27. METAMIZOL MAGNESIC [Concomitant]
     Indication: PRODUCT USED FOR UNKNOWN INDICATION
     Route: 065
     Dates: start: 20120820
  28. METAMIZOL MAGNESIC [Concomitant]
     Route: 065
     Dates: start: 20130603, end: 20130605
  29. DEXCHLORPHENIRAMINE MALEATE [Concomitant]
     Indication: PRODUCT USED FOR UNKNOWN INDICATION
     Route: 065
     Dates: start: 201208
  30. NISTATIN [Concomitant]
     Indication: PRODUCT USED FOR UNKNOWN INDICATION
     Route: 065
     Dates: start: 20120903, end: 20120910
  31. NISTATIN [Concomitant]
     Route: 065
     Dates: start: 20121027
  32. HIDROSMIN [Concomitant]
     Indication: PRODUCT USED FOR UNKNOWN INDICATION
     Route: 065
     Dates: start: 20121024
  33. MASTICAL [Concomitant]
     Indication: PRODUCT USED FOR UNKNOWN INDICATION
     Route: 065
     Dates: start: 20130123
  34. CODEIN [Concomitant]
     Indication: PRODUCT USED FOR UNKNOWN INDICATION
     Route: 065
     Dates: start: 20130123, end: 20130429
  35. CODEIN [Concomitant]
     Route: 065
     Dates: start: 20130219, end: 20130220
  36. ALPRAZOLAM [Concomitant]
     Indication: PRODUCT USED FOR UNKNOWN INDICATION
     Route: 065
     Dates: start: 20121022
  37. ALPRAZOLAM [Concomitant]
     Route: 065
     Dates: start: 20130123
  38. ALPRAZOLAM [Concomitant]
     Route: 065
     Dates: start: 20130323, end: 20130324
  39. WARFARIN [Concomitant]
     Indication: PRODUCT USED FOR UNKNOWN INDICATION
     Route: 065
     Dates: start: 20130218
  40. WARFARIN [Concomitant]
     Route: 065
     Dates: start: 20130125
  41. CALCIUM [Concomitant]
     Indication: PRODUCT USED FOR UNKNOWN INDICATION
     Route: 065
     Dates: start: 20130218
  42. FLUCONAZOL [Concomitant]
     Indication: PRODUCT USED FOR UNKNOWN INDICATION
     Route: 065
     Dates: start: 20130408, end: 20130429
  43. MUPIROCINE [Concomitant]
     Indication: PRODUCT USED FOR UNKNOWN INDICATION
     Route: 065
     Dates: start: 20121008
  44. SALINE [Concomitant]
     Indication: PRODUCT USED FOR UNKNOWN INDICATION
     Route: 065
     Dates: start: 20130327, end: 20130327
  45. SALINE [Concomitant]
     Route: 065
     Dates: start: 20130323, end: 20130324
  46. SALINE [Concomitant]
     Route: 065
     Dates: start: 20130509, end: 20130510
  47. SALINE [Concomitant]
     Route: 065
     Dates: start: 20130603, end: 20130616
  48. DARBEPOETIN ALFA [Concomitant]
     Indication: PRODUCT USED FOR UNKNOWN INDICATION
     Route: 065
     Dates: start: 20130304, end: 20130304
  49. DARBEPOETIN ALFA [Concomitant]
     Route: 065
     Dates: start: 20130408, end: 20130408
  50. IPRATROPIUM BROMIDE [Concomitant]
     Indication: PRODUCT USED FOR UNKNOWN INDICATION
     Route: 065
     Dates: start: 20130318, end: 20130318

REACTIONS (7)
  - Cardiac failure [Fatal]
  - Decubitus ulcer [Recovered/Resolved]
  - Cardiac failure [Recovered/Resolved]
  - Blood creatinine increased [Recovered/Resolved]
  - Anaemia [Recovered/Resolved]
  - Renal failure [Recovered/Resolved]
  - Pyrexia [Recovered/Resolved]
